FAERS Safety Report 16001879 (Version 1)
Quarter: 2019Q1

REPORT INFORMATION
  Report Type: Spontaneous
  Country: ES (occurrence: ES)
  Receive Date: 20190225
  Receipt Date: 20190225
  Transmission Date: 20190418
  Serious: Yes (Hospitalization, Other)
  Sender: FDA-Public Use
  Company Number: PHHY2019ES039861

PATIENT
  Age: 37 Year
  Sex: Male

DRUGS (1)
  1. TACROLIMUS. [Suspect]
     Active Substance: TACROLIMUS
     Indication: PRODUCT USED FOR UNKNOWN INDICATION
     Dosage: UNK
     Route: 065

REACTIONS (15)
  - Acute kidney injury [Unknown]
  - Weight increased [Unknown]
  - Urinary tract infection [Unknown]
  - Depression [Unknown]
  - Mouth ulceration [Unknown]
  - Drug ineffective [Unknown]
  - Peripheral arterial occlusive disease [Unknown]
  - Renal transplant failure [Unknown]
  - Dysphagia [Unknown]
  - Vomiting [Unknown]
  - Leukopenia [Unknown]
  - Wernicke^s encephalopathy [Unknown]
  - Product physical issue [Unknown]
  - Cytomegalovirus infection [Unknown]
  - Kidney transplant rejection [Unknown]

NARRATIVE: CASE EVENT DATE: 201503
